FAERS Safety Report 6483278-2 (Version None)
Quarter: 2009Q4

REPORT INFORMATION
  Report Type: 
  Country: None (occurrence: None)
  Receive Date: 20091209
  Receipt Date: 20090601
  Transmission Date: 20100525
  Serious: No
  Sender: FDA-Public Use
  Company Number: US-AMGEN-KDL344293

PATIENT
  Sex: Female

DRUGS (3)
  1. ENBREL [Suspect]
     Indication: PSORIATIC ARTHROPATHY
     Route: 058
     Dates: start: 20060915
  2. ENBREL [Suspect]
     Indication: PSORIASIS
  3. ENBREL [Suspect]
     Indication: RHEUMATOID ARTHRITIS

REACTIONS (6)
  - ARTHRALGIA [None]
  - EAR INFECTION [None]
  - JOINT STIFFNESS [None]
  - OTITIS MEDIA FUNGAL [None]
  - PSORIASIS [None]
  - TYMPANIC MEMBRANE PERFORATION [None]
